FAERS Safety Report 4633547-3 (Version None)
Quarter: 2005Q2

REPORT INFORMATION
  Report Type: 
  Country: None (occurrence: None)
  Receive Date: 20050331
  Receipt Date: 20050105
  Transmission Date: 20051028
  Serious: Yes (Other)
  Sender: FDA-Public Use
  Company Number: 200510057BCC

PATIENT
  Age: 57 Year
  Sex: Male
  Weight: 154.223 kg

DRUGS (1)
  1. ALEVE [Suspect]
     Indication: SHOULDER PAIN
     Dosage: 440 MG ONCE ORAL
     Route: 048
     Dates: start: 20050102

REACTIONS (6)
  - HYPERSENSITIVITY [None]
  - OEDEMA PERIPHERAL [None]
  - PRURITUS [None]
  - SWELLING FACE [None]
  - SWOLLEN TONGUE [None]
  - URTICARIA [None]
